FAERS Safety Report 15374175 (Version 1)
Quarter: 2018Q3

REPORT INFORMATION
  Report Type: Report from Study
  Country: None (occurrence: GB)
  Receive Date: 20180912
  Receipt Date: 20180912
  Transmission Date: 20181010
  Serious: Yes (Other)
  Sender: FDA-Public Use
  Company Number: GB-ABBVIE-18K-167-2482190-00

PATIENT
  Sex: Female

DRUGS (2)
  1. HUMIRA [Suspect]
     Active Substance: ADALIMUMAB
     Route: 058
     Dates: start: 2018
  2. HUMIRA [Suspect]
     Active Substance: ADALIMUMAB
     Indication: HIDRADENITIS
     Route: 058

REACTIONS (3)
  - Nasopharyngitis [Unknown]
  - Exposure during pregnancy [Unknown]
  - Abortion spontaneous [Unknown]

NARRATIVE: CASE EVENT DATE: 2018
